FAERS Safety Report 25791649 (Version 1)
Quarter: 2025Q3

REPORT INFORMATION
  Report Type: Spontaneous
  Country: KE (occurrence: KE)
  Receive Date: 20250911
  Receipt Date: 20250911
  Transmission Date: 20251021
  Serious: Yes (Other)
  Sender: ABBVIE
  Company Number: KE-ABBVIE-6452406

PATIENT
  Sex: Female

DRUGS (4)
  1. SURVANTA [Suspect]
     Active Substance: BERACTANT
     Indication: Neonatal respiratory distress syndrome
     Route: 042
     Dates: start: 20250309, end: 20250309
  2. PENICILLIN G [Concomitant]
     Active Substance: PENICILLIN G
     Indication: Evidence based treatment
     Route: 042
     Dates: start: 20250309
  3. GENTAMICIN [Concomitant]
     Active Substance: GENTAMICIN
     Indication: Sepsis neonatal
     Route: 042
     Dates: start: 20250309
  4. CAFFEINE CITRATE [Concomitant]
     Active Substance: CAFFEINE CITRATE
     Indication: Prophylaxis
     Route: 042
     Dates: start: 20250309

REACTIONS (1)
  - Pneumothorax spontaneous [Unknown]

NARRATIVE: CASE EVENT DATE: 20250309
